FAERS Safety Report 8256842-8 (Version None)
Quarter: 2012Q2

REPORT INFORMATION
  Report Type: 
  Country: None (occurrence: None)
  Receive Date: 20120403
  Receipt Date: 20120329
  Transmission Date: 20120825
  Serious: Yes (Hospitalization, Congenital Anomaly, Other)
  Sender: FDA-Public Use
  Company Number: US-PFIZER INC-2012044625

PATIENT
  Sex: Female
  Weight: 3 kg

DRUGS (19)
  1. NEXIUM [Concomitant]
     Dosage: 40 MG, UNK
     Route: 064
     Dates: start: 20071216
  2. ZOLOFT [Suspect]
     Dosage: 12.5 MG, 1X/DAY
     Route: 064
     Dates: start: 20080415
  3. ZOFRAN [Concomitant]
     Indication: VOMITING
  4. MAGNESIUM HYDROXIDE TAB [Concomitant]
     Dosage: 10 ML, UNK
     Route: 064
     Dates: start: 20071216
  5. TORADOL [Concomitant]
     Dosage: 30 MG, UNK
     Route: 064
     Dates: start: 20080624
  6. PREVACID [Concomitant]
     Indication: GASTROOESOPHAGEAL REFLUX DISEASE
     Dosage: 30 MG, UNK
     Route: 064
     Dates: start: 20070628, end: 20071228
  7. CHLORHEXIDINE [Concomitant]
     Dosage: UNK
     Route: 064
     Dates: start: 20080205
  8. MULTI-VITAMINS [Concomitant]
     Dosage: UNK
     Route: 064
     Dates: start: 20071120
  9. REGLAN [Concomitant]
     Dosage: 10 MG, 2X/DAY (BEFORE MEALS AND AT BED TIME)
     Route: 064
     Dates: start: 20071202, end: 20071216
  10. MACROBID [Concomitant]
     Dosage: 100 MG, 2X/DAY
     Route: 064
     Dates: start: 20080523
  11. AMOXICILLIN [Concomitant]
     Dosage: 500 MG, 3X/DAY
     Route: 064
     Dates: start: 20080530
  12. ZOLOFT [Suspect]
     Indication: ANXIETY
     Dosage: 12.5 MG, 1X/DAY
     Route: 064
     Dates: start: 20070425, end: 20071016
  13. AEROBID [Concomitant]
     Dosage: TWO PUFFS TWICE A DAY
     Route: 064
  14. ZANTAC [Concomitant]
     Indication: GASTROOESOPHAGEAL REFLUX DISEASE
     Dosage: 150 MG, 2X/DAY
     Route: 064
     Dates: start: 20071202
  15. ZOFRAN [Concomitant]
     Indication: NAUSEA
     Dosage: 4 MG, 4X/DAY
     Route: 064
  16. PROMETHAZINE [Concomitant]
     Indication: VOMITING
  17. FOLIC ACID [Concomitant]
     Dosage: UNK
     Route: 064
     Dates: start: 20070301
  18. CETIRIZINE HCL [Concomitant]
     Dosage: UNK
     Route: 064
  19. PROMETHAZINE [Concomitant]
     Indication: NAUSEA
     Dosage: UNK MG, 4X/DAY
     Route: 064

REACTIONS (7)
  - MATERNAL EXPOSURE TIMING UNSPECIFIED [None]
  - PATENT DUCTUS ARTERIOSUS [None]
  - TACHYCARDIA FOETAL [None]
  - CONGENITAL TRICUSPID VALVE INCOMPETENCE [None]
  - VENTRICULAR SEPTAL DEFECT [None]
  - JAUNDICE NEONATAL [None]
  - ATRIAL SEPTAL DEFECT [None]
